FAERS Safety Report 6310714-4 (Version None)
Quarter: 2009Q3

REPORT INFORMATION
  Report Type: 
  Country: None (occurrence: None)
  Receive Date: 20090811
  Receipt Date: 20090702
  Transmission Date: 20100115
  Serious: Yes (Hospitalization, Other)
  Sender: FDA-Public Use
  Company Number: 001196

PATIENT
  Sex: Male
  Weight: 70 kg

DRUGS (7)
  1. VIMPAT [Suspect]
     Indication: CONVULSION
     Dosage: (100 MG 1X/24 HOURS INTRAVENOUS))
     Route: 042
     Dates: start: 20090620, end: 20090622
  2. LEVETIRACETAM [Suspect]
     Dosage: (500 MG BID ORAL)
     Route: 048
  3. ENOXAPARIN SODIUM [Concomitant]
  4. ESOMEPRAZOLE [Concomitant]
  5. TOPIRAMATE [Concomitant]
  6. LORAZEPAM [Concomitant]
  7. PARACETAMOL [Concomitant]

REACTIONS (3)
  - BRADYCARDIA [None]
  - HALLUCINATION, AUDITORY [None]
  - PSYCHOTIC DISORDER [None]
